FAERS Safety Report 16659471 (Version 2)
Quarter: 2019Q3

REPORT INFORMATION
  Report Type: Spontaneous
  Country: JP (occurrence: JP)
  Receive Date: 20190802
  Receipt Date: 20190919
  Transmission Date: 20191004
  Serious: Yes (Hospitalization)
  Sender: FDA-Public Use
  Company Number: JP-009507513-1906JPN000894J

PATIENT
  Age: 74 Year
  Sex: Male
  Weight: 49 kg

DRUGS (6)
  1. KEYTRUDA [Suspect]
     Active Substance: PEMBROLIZUMAB
     Indication: NON-SMALL CELL LUNG CANCER
     Dosage: 200 MILLIGRAM, Q3W
     Route: 041
     Dates: start: 20190513, end: 20190513
  2. UNASYN [Suspect]
     Active Substance: AMPICILLIN SODIUM\SULBACTAM SODIUM
     Indication: INFECTION
     Dosage: 3 GRAM, BID
     Route: 042
     Dates: start: 20190529, end: 20190530
  3. TAKEPRON [Concomitant]
     Active Substance: LANSOPRAZOLE
     Indication: HYPERTENSION
     Dosage: 15 MILLIGRAM, QOD
     Route: 048
     Dates: end: 20190529
  4. ZACRAS [Concomitant]
     Active Substance: AMLODIPINE BESYLATE\AZILSARTAN
     Indication: HYPERTENSION
     Dosage: 1 DOSAGE FORM, QOD
     Route: 048
     Dates: end: 20190529
  5. NORVASC [Concomitant]
     Active Substance: AMLODIPINE BESYLATE
     Indication: HYPERTENSION
     Dosage: 5 MILLIGRAM, QOD
     Route: 048
     Dates: end: 20190529
  6. NAIXAN [Concomitant]
     Active Substance: NAPROXEN SODIUM
     Indication: TUMOUR ASSOCIATED FEVER
     Dosage: 100 MILLIGRAM, TID
     Route: 048
     Dates: start: 20190510, end: 20190529

REACTIONS (2)
  - Pyrexia [Recovering/Resolving]
  - Liver disorder [Recovering/Resolving]

NARRATIVE: CASE EVENT DATE: 20190513
